FAERS Safety Report 12196764 (Version 1)
Quarter: 2016Q1

REPORT INFORMATION
  Report Type: Spontaneous
  Country: US (occurrence: US)
  Receive Date: 20160321
  Receipt Date: 20160321
  Transmission Date: 20160526
  Serious: Yes (Hospitalization)
  Sender: FDA-Public Use
  Company Number: US-STANDARD HOMEOPATHIC COMPANY-1049392

PATIENT
  Age: 68 Year
  Sex: Male
  Weight: 97.73 kg

DRUGS (2)
  1. ARTHRITIS PAIN FORMULA (HOMEOPATHIC) [Suspect]
     Active Substance: HOMEOPATHICS
     Indication: ARTHRALGIA
     Route: 048
     Dates: start: 20160307, end: 20160307
  2. MEDINATURA T-RELIEF MOBILITY TABLETS [Suspect]
     Active Substance: HOMEOPATHICS
     Route: 048
     Dates: start: 20160307, end: 20160307

REACTIONS (2)
  - Tachycardia [Recovering/Resolving]
  - Palpitations [Unknown]

NARRATIVE: CASE EVENT DATE: 20160307
